FAERS Safety Report 12724965 (Version 1)
Quarter: 2016Q3

REPORT INFORMATION
  Report Type: Spontaneous
  Country: US (occurrence: US)
  Receive Date: 20160908
  Receipt Date: 20160908
  Transmission Date: 20161109
  Serious: No
  Sender: FDA-Public Use
  Company Number: US-APOTEX-2016AP008680

PATIENT
  Sex: Female

DRUGS (1)
  1. FLUNISOLIDE. [Suspect]
     Active Substance: FLUNISOLIDE
     Indication: SINUSITIS
     Dosage: UNK
     Route: 065

REACTIONS (2)
  - Ageusia [Unknown]
  - Anosmia [Unknown]
